FAERS Safety Report 7970911 (Version 3)
Quarter: 2016Q2

REPORT INFORMATION
  Report Type: Spontaneous
  Country: US (occurrence: US)
  Receive Date: 20110602
  Receipt Date: 20160510
  Transmission Date: 20160815
  Serious: Yes (Life-Threatening, Other)
  Sender: FDA-Public Use
  Company Number: US-PFIZER INC-2011116406

PATIENT
  Age: 47 Year
  Sex: Male

DRUGS (1)
  1. VERAPAMIL HCL [Suspect]
     Active Substance: VERAPAMIL HYDROCHLORIDE
     Dosage: 6300 MG, UNK

REACTIONS (6)
  - Shock [Recovered/Resolved]
  - Intentional overdose [Recovered/Resolved]
  - Hypoxia [Recovered/Resolved]
  - Ileus [Unknown]
  - Atrioventricular block complete [Recovered/Resolved]
  - Lethargy [Recovered/Resolved]
